FAERS Safety Report 10041451 (Version 1)
Quarter: 2014Q1

REPORT INFORMATION
  Report Type: Spontaneous
  Country: US (occurrence: None)
  Receive Date: 20140326
  Receipt Date: 20140326
  Transmission Date: 20141002
  Serious: Yes (Life-Threatening, Hospitalization)
  Sender: FDA-Public Use
  Company Number: None

PATIENT
  Age: 36 Year
  Sex: Male
  Weight: 103 kg

DRUGS (1)
  1. TAMIFLU [Suspect]
     Indication: INFLUENZA
     Dosage: 1
     Route: 048
     Dates: start: 20140315, end: 20140318

REACTIONS (4)
  - Transaminases increased [None]
  - Cholestasis [None]
  - International normalised ratio increased [None]
  - Acute hepatic failure [None]
